FAERS Safety Report 21302453 (Version 1)
Quarter: 2022Q3

REPORT INFORMATION
  Report Type: Spontaneous
  Country: US (occurrence: None)
  Receive Date: 20220906
  Receipt Date: 20220906
  Transmission Date: 20221026
  Serious: Yes (Disabling)
  Sender: FDA-Public Use
  Company Number: None

PATIENT
  Age: 69 Year
  Sex: Female
  Weight: 191.7 kg

DRUGS (14)
  1. MEGESTROL ACETATE [Suspect]
     Active Substance: MEGESTROL ACETATE
     Indication: Endometrial hyperplasia
     Dosage: OTHER QUANTITY : 1 TABLET(S);?FREQUENCY : DAILY;?
     Route: 048
  2. APAP [Concomitant]
     Active Substance: ACETAMINOPHEN
  3. LEVOTHYROXINE [Concomitant]
     Active Substance: LEVOTHYROXINE
  4. Lortrel [Concomitant]
  5. METOPROLOL [Concomitant]
     Active Substance: METOPROLOL
  6. GLIMEPIRIDE [Concomitant]
     Active Substance: GLIMEPIRIDE
  7. TRESIBA [Concomitant]
     Active Substance: INSULIN DEGLUDEC
  8. FIASP [Concomitant]
     Active Substance: INSULIN ASPART
  9. ATORVASTATIN [Concomitant]
     Active Substance: ATORVASTATIN
  10. MIRENA [Concomitant]
     Active Substance: LEVONORGESTREL
  11. MEGESTROL ACETATE [Concomitant]
     Active Substance: MEGESTROL ACETATE
  12. VITAMIN D [Concomitant]
     Active Substance: VITAMIN D NOS
  13. FISH OIL [Concomitant]
  14. VITAMINS [Concomitant]
     Active Substance: VITAMINS

REACTIONS (6)
  - Anxiety [None]
  - Nightmare [None]
  - Muscular weakness [None]
  - Fatigue [None]
  - Weight decreased [None]
  - Feeling abnormal [None]

NARRATIVE: CASE EVENT DATE: 20220511
